FAERS Safety Report 19361743 (Version 1)
Quarter: 2021Q2

REPORT INFORMATION
  Report Type: Report from Study
  Country: None (occurrence: US)
  Receive Date: 20210602
  Receipt Date: 20210602
  Transmission Date: 20210717
  Serious: No
  Sender: FDA-Public Use
  Company Number: US-MDD US OPERATIONS-USW202006-001225

PATIENT
  Sex: Male
  Weight: 127.5 kg

DRUGS (1)
  1. APOKYN [Suspect]
     Active Substance: APOMORPHINE HYDROCHLORIDE
     Indication: PARKINSON^S DISEASE
     Dosage: 3ML CARTRIDGE 1 EA CART ; UP TO 0.6 ML/DOSE UNDER THE SKIN DO NOT EXCEED FIVE DOSES PER DAY
     Route: 058

REACTIONS (4)
  - Injection site nodule [Unknown]
  - Injection site mass [Unknown]
  - Drug effect less than expected [Unknown]
  - Hot flush [Unknown]
